FAERS Safety Report 9265587 (Version 2)
Quarter: 2013Q2

REPORT INFORMATION
  Report Type: Spontaneous
  Country: US (occurrence: US)
  Receive Date: 20130501
  Receipt Date: 20130520
  Transmission Date: 20140414
  Serious: Yes (Other)
  Sender: FDA-Public Use
  Company Number: US-BRISTOL-MYERS SQUIBB COMPANY-18823260

PATIENT
  Age: 66 Year
  Sex: Female
  Weight: 58.96 kg

DRUGS (3)
  1. ORENCIA FOR INJ [Suspect]
     Indication: RHEUMATOID ARTHRITIS
     Dosage: LAST INF-22APR2013
     Route: 042
     Dates: start: 20130225
  2. ACETAMINOPHEN [Concomitant]
     Dates: start: 20130423
  3. FLEXERIL [Concomitant]
     Dosage: PT TOOK5MG EVRY OTHRDY AND10MG EVRY OTHRDY

REACTIONS (2)
  - Fractured sacrum [Unknown]
  - Drug ineffective [Unknown]
